FAERS Safety Report 8776802 (Version 1)
Quarter: 2012Q4

REPORT INFORMATION
  Report Type: 
  Country: US (occurrence: US)
  Receive Date: 20120911
  Receipt Date: 20120911
  Transmission Date: 20130627
  Serious: Yes (Other)
  Sender: FDA-Public Use
  Company Number: US-ELI_LILLY_AND_COMPANY-US201206008280

PATIENT
  Age: 68 Year
  Sex: Male

DRUGS (11)
  1. FORTEO [Suspect]
     Indication: OSTEOPOROSIS
     Dosage: 20 ug, qd
     Route: 065
     Dates: start: 20120521
  2. FORTEO [Suspect]
     Dosage: 20 ug, qd
     Route: 065
  3. FORTEO [Suspect]
     Dosage: 20 ug, qd
     Route: 065
  4. MIRALAX [Concomitant]
     Dosage: UNK UNK, qd
  5. BENEFIBER [Concomitant]
     Dosage: UNK, qd
  6. SELEGILINE [Concomitant]
     Indication: PARKINSON^S DISEASE
     Dosage: 5 mg, each morning
  7. SELEGILINE [Concomitant]
     Dosage: 5 mg, other
  8. COMTAN [Concomitant]
     Dosage: 200 mg, other
  9. SINEMET [Concomitant]
     Dosage: UNK, qd
  10. FINASTERIDE [Concomitant]
     Dosage: 5 mg, qd
  11. ANDROGEL [Concomitant]
     Dosage: UNK, qd

REACTIONS (8)
  - Malignant melanoma [Unknown]
  - Melanocytic naevus [Unknown]
  - Parkinson^s disease [Recovered/Resolved]
  - Balance disorder [Recovered/Resolved]
  - Disorientation [Recovered/Resolved]
  - Increased appetite [Unknown]
  - Injection site erythema [Not Recovered/Not Resolved]
  - Movement disorder [Recovered/Resolved]
